APPROVED DRUG PRODUCT: VITRAKVI
Active Ingredient: LAROTRECTINIB SULFATE
Strength: EQ 25MG BASE
Dosage Form/Route: CAPSULE;ORAL
Application: N210861 | Product #001
Applicant: BAYER HEALTHCARE PHARMACEUTICALS INC
Approved: Nov 26, 2018 | RLD: Yes | RS: No | Type: RX

PATENTS:
Patent 10047097 | Expires: Oct 21, 2029
Patent 8865698 | Expires: Oct 21, 2029
Patent 10005783 | Expires: Oct 21, 2029
Patent 9782414 | Expires: Nov 16, 2035
Patent 10285993 | Expires: Nov 16, 2035
Patent 11974998 | Expires: May 16, 2037
Patent 11337967 | Expires: May 16, 2037
Patent 10813936 | Expires: Nov 16, 2035
Patent 9447104 | Expires: Oct 21, 2029
Patent 9676783 | Expires: Oct 21, 2029
Patent 10774085 | Expires: Oct 21, 2029
Patent 8513263 | Expires: Dec 23, 2029
Patent 10799505 | Expires: Aug 15, 2036
Patent 10172861 | Expires: Nov 16, 2035
Patent 9127013 | Expires: Oct 21, 2029